FAERS Safety Report 7496056-2 (Version None)
Quarter: 2011Q2

REPORT INFORMATION
  Report Type: 
  Country: None (occurrence: None)
  Receive Date: 20110523
  Receipt Date: 20110518
  Transmission Date: 20111010
  Serious: Yes (Other)
  Sender: FDA-Public Use
  Company Number: DE-PFIZER INC-2011023845

PATIENT
  Age: 59 Year
  Sex: Female
  Weight: 73 kg

DRUGS (2)
  1. VESDIL [Concomitant]
     Dosage: 2.5 MG, UNK
  2. SUNITINIB MALATE [Suspect]
     Indication: RENAL CANCER METASTATIC
     Dosage: 50 MG, 1X/DAY
     Route: 048
     Dates: start: 20110110, end: 20110121

REACTIONS (4)
  - JAUNDICE [None]
  - NAUSEA [None]
  - MALAISE [None]
  - ABDOMINAL DISCOMFORT [None]
